FAERS Safety Report 18062246 (Version 2)
Quarter: 2021Q2

REPORT INFORMATION
  Report Type: Spontaneous
  Country: CA (occurrence: CA)
  Receive Date: 20200723
  Receipt Date: 20210628
  Transmission Date: 20210717
  Serious: Yes (Other)
  Sender: FDA-Public Use
  Company Number: CA-TEVA-2020-CA-1804259

PATIENT
  Age: 40 Year
  Sex: Male

DRUGS (4)
  1. OXYCODONE HYDROCHLORIDE. [Suspect]
     Active Substance: OXYCODONE HYDROCHLORIDE
     Indication: PRODUCT USED FOR UNKNOWN INDICATION
     Dosage: 800 MILLIGRAM DAILY;
     Route: 065
  2. OXYCODONE HYDROCHLORIDE. [Suspect]
     Active Substance: OXYCODONE HYDROCHLORIDE
     Route: 065
  3. COCAINE [Suspect]
     Active Substance: COCAINE
     Indication: PRODUCT USED FOR UNKNOWN INDICATION
     Route: 065
  4. ACETAMINOPHEN/OXYCODONE HYDROCHLORIDE/OXYCODONE TEREPTHALATE [Suspect]
     Active Substance: ACETAMINOPHEN\OXYCODONE HYDROCHLORIDE\OXYCODONE TEREPHTHALATE
     Indication: PRODUCT USED FOR UNKNOWN INDICATION
     Route: 065

REACTIONS (10)
  - Blood test abnormal [Recovered/Resolved]
  - Toxicity to various agents [Recovered/Resolved]
  - Substance dependence [Recovered/Resolved]
  - Insomnia [Recovered/Resolved]
  - Substance abuse [Recovered/Resolved]
  - Substance use disorder [Recovered/Resolved]
  - Underweight [Recovered/Resolved]
  - Haematemesis [Recovered/Resolved]
  - Drug withdrawal syndrome [Recovered/Resolved]
  - Speech disorder [Recovered/Resolved]
